FAERS Safety Report 8980802 (Version 1)
Quarter: 2012Q4

REPORT INFORMATION
  Report Type: 
  Country: FR (occurrence: FR)
  Receive Date: 20121221
  Receipt Date: 20121221
  Transmission Date: 20130627
  Serious: Yes (Death, Hospitalization)
  Sender: FDA-Public Use
  Company Number: FR-009507513-1212FRA005698

PATIENT
  Age: 35 Year
  Sex: Male

DRUGS (8)
  1. CANCIDAS [Suspect]
     Indication: ANTIFUNGAL PROPHYLAXIS
  2. BASILIXIMAB [Suspect]
     Indication: IMMUNOSUPPRESSANT DRUG THERAPY
  3. METHYLPREDNISOLONE [Suspect]
     Indication: IMMUNOSUPPRESSANT DRUG THERAPY
  4. TACROLIMUS [Suspect]
     Indication: IMMUNOSUPPRESSANT DRUG THERAPY
  5. MYCOPHENOLATE MOFETIL [Suspect]
  6. CEFTAZIDIME [Concomitant]
  7. CIPROFLOXACIN [Concomitant]
  8. MEROPENEM [Concomitant]

REACTIONS (2)
  - Systemic mycosis [Fatal]
  - Drug ineffective [Unknown]
